FAERS Safety Report 5004381-X (Version None)
Quarter: 2006Q2

REPORT INFORMATION
  Report Type: 
  Country: None (occurrence: None)
  Receive Date: 20060511
  Receipt Date: 20060502
  Transmission Date: 20061013
  Serious: Yes (Death, Hospitalization, Other)
  Sender: FDA-Public Use
  Company Number: 163-20785-06020154

PATIENT
  Age: 81 Year
  Sex: Female

DRUGS (3)
  1. THALOMID [Suspect]
     Indication: MYELODYSPLASTIC SYNDROME
     Dosage: 100 MG, DAILY, ORAL
     Route: 048
     Dates: start: 20041022, end: 20051201
  2. CELEBREX [Suspect]
     Dates: end: 20060101
  3. VITAMINS (VITAMINS) [Concomitant]

REACTIONS (10)
  - BLOOD PRESSURE INCREASED [None]
  - CATHETER RELATED COMPLICATION [None]
  - CONTUSION [None]
  - DISEASE PROGRESSION [None]
  - HAEMATURIA [None]
  - MYELODYSPLASTIC SYNDROME [None]
  - NEUROPATHY [None]
  - NEUROPATHY PERIPHERAL [None]
  - THROMBOSIS [None]
  - URINARY BLADDER HAEMORRHAGE [None]
